FAERS Safety Report 6105120-1 (Version None)
Quarter: 2009Q1

REPORT INFORMATION
  Report Type: 
  Country: None (occurrence: None)
  Receive Date: 20090306
  Receipt Date: 20090203
  Transmission Date: 20090719
  Serious: No
  Sender: FDA-Public Use
  Company Number: US-BAYER-200812481BCC

PATIENT
  Age: 89 Year
  Sex: Female
  Weight: 66 kg

DRUGS (5)
  1. ALEVE (CAPLET) [Suspect]
     Indication: OSTEOPOROSIS
     Dosage: TOTAL DAILY DOSE: 660 MG  UNIT DOSE: 220 MG
     Route: 048
     Dates: start: 20080602
  2. PLAVIX [Concomitant]
  3. ASPIRIN [Concomitant]
  4. DILTIAZEM [Concomitant]
  5. DIGOXIN [Concomitant]

REACTIONS (2)
  - DIZZINESS [None]
  - FATIGUE [None]
